FAERS Safety Report 6423923-0 (Version None)
Quarter: 2009Q4

REPORT INFORMATION
  Report Type: 
  Country: None (occurrence: None)
  Receive Date: 20091102
  Receipt Date: 20091019
  Transmission Date: 20100525
  Serious: Yes (Hospitalization, Other)
  Sender: FDA-Public Use
  Company Number: PHHY2009BR45738

PATIENT
  Age: 55 Year
  Sex: Female
  Weight: 68 kg

DRUGS (1)
  1. CODATEN [Suspect]
     Indication: PAIN
     Dosage: 1 DF, Q8H
     Route: 048

REACTIONS (4)
  - ABDOMINAL PAIN UPPER [None]
  - ARTHROPATHY [None]
  - KNEE OPERATION [None]
  - VOMITING [None]
